FAERS Safety Report 6596788-4 (Version None)
Quarter: 2010Q1

REPORT INFORMATION
  Report Type: 
  Country: None (occurrence: None)
  Receive Date: 20100212
  Receipt Date: 20100201
  Transmission Date: 20100710
  Serious: Yes (Other)
  Sender: FDA-Public Use
  Company Number: 2009029459

PATIENT
  Age: 68 Year
  Sex: Male
  Weight: 102.0593 kg

DRUGS (7)
  1. NUVIGIL [Suspect]
     Indication: NARCOLEPSY
     Dosage: 250 MG (250 MG, 1 IN 1 D), ORAL
     Route: 048
     Dates: start: 20090801, end: 20091101
  2. PROZAC [Concomitant]
  3. RITALIN EXTENDED RELEASE (METHYLPHENIDATE HYDROCHLORIDE) [Concomitant]
  4. XYREM [Concomitant]
  5. AMBIEN [Concomitant]
  6. SONATA (CARISOPRODOL) [Concomitant]
  7. RITALIN [Concomitant]

REACTIONS (2)
  - DEAFNESS TRANSITORY [None]
  - TINNITUS [None]
